FAERS Safety Report 9901679 (Version 3)
Quarter: 2014Q1

REPORT INFORMATION
  Report Type: Spontaneous
  Country: JP (occurrence: JP)
  Receive Date: 20140217
  Receipt Date: 20140313
  Transmission Date: 20141002
  Serious: Yes (Death)
  Sender: FDA-Public Use
  Company Number: JP-OTSUKA-JP-2013-15370

PATIENT
  Age: 65 Year
  Sex: Male

DRUGS (5)
  1. SAMSCA [Suspect]
     Indication: HEPATIC CIRRHOSIS
     Dosage: 7.5 MG MILLIGRAM(S), DAILY DOSE
     Route: 048
  2. FUROSEMIDE [Concomitant]
     Route: 065
  3. LASIX [Concomitant]
     Route: 042
  4. ALDACTONE A [Concomitant]
     Route: 048
  5. FLUITRAN [Concomitant]
     Route: 048

REACTIONS (2)
  - Pigmentation disorder [Not Recovered/Not Resolved]
  - Hepatic cirrhosis [Fatal]
